FAERS Safety Report 15518129 (Version 3)
Quarter: 2018Q4

REPORT INFORMATION
  Report Type: Report from Study
  Country: US (occurrence: US)
  Receive Date: 20181017
  Receipt Date: 20181105
  Transmission Date: 20190205
  Serious: Yes (Other)
  Sender: FDA-Public Use
  Company Number: US-PFIZER INC-2018395959

PATIENT
  Age: 62 Year
  Sex: Female

DRUGS (3)
  1. IBRANCE [Suspect]
     Active Substance: PALBOCICLIB
     Indication: BREAST CANCER FEMALE
     Dosage: 100 MG, DAILY
     Route: 048
     Dates: start: 20180907
  2. IBRANCE [Suspect]
     Active Substance: PALBOCICLIB
     Dosage: 75 MG, CYCLIC [21 DAYS ON, 7 DAYS OFF MEDICATION TO MAKE UP A 28 DAY CYCLE]
     Route: 048
     Dates: start: 20181023
  3. IBRANCE [Suspect]
     Active Substance: PALBOCICLIB
     Dosage: 75 MG, CYCLIC (21 DAYS, OFF 7 DAYS, OF A 28 DAY CYCLE)
     Route: 048
     Dates: start: 20180926, end: 20180927

REACTIONS (5)
  - Asthenia [Unknown]
  - Decreased appetite [Unknown]
  - Hot flush [Unknown]
  - Bone marrow failure [Unknown]
  - Fatigue [Unknown]

NARRATIVE: CASE EVENT DATE: 2018
